FAERS Safety Report 11131328 (Version 1)
Quarter: 2015Q2

REPORT INFORMATION
  Report Type: Spontaneous
  Country: US (occurrence: US)
  Receive Date: 20150522
  Receipt Date: 20150522
  Transmission Date: 20150821
  Serious: No
  Sender: FDA-Public Use
  Company Number: US-ASTRAZENECA-2015SE44790

PATIENT
  Age: 787 Month
  Sex: Male
  Weight: 63.5 kg

DRUGS (5)
  1. SYMBICORT [Suspect]
     Active Substance: BUDESONIDE\FORMOTEROL FUMARATE DIHYDRATE
     Indication: ASTHMA
     Dosage: 80 / 4.5 MCG ,AS REQUIRED
     Route: 055
  2. PERCOCET [Suspect]
     Active Substance: ACETAMINOPHEN\OXYCODONE HYDROCHLORIDE
     Indication: PAIN
     Route: 065
  3. KICK ASS SINUS AND ALLERGY TINCTURE [Concomitant]
     Indication: SINUS DISORDER
     Route: 065
  4. COLLOIDAL SILVER [Concomitant]
     Active Substance: SILVER
     Indication: ANTIBIOTIC PROPHYLAXIS
     Route: 065
  5. VICODIN [Suspect]
     Active Substance: ACETAMINOPHEN\HYDROCODONE BITARTRATE
     Indication: PAIN
     Route: 065

REACTIONS (6)
  - Body height decreased [Unknown]
  - Bronchitis [Unknown]
  - Asthma [Unknown]
  - Wheezing [Unknown]
  - Memory impairment [Unknown]
  - Dyspnoea [Recovering/Resolving]

NARRATIVE: CASE EVENT DATE: 201503
